FAERS Safety Report 6048078-6 (Version None)
Quarter: 2009Q1

REPORT INFORMATION
  Report Type: 
  Country: None (occurrence: None)
  Receive Date: 20090123
  Receipt Date: 20090114
  Transmission Date: 20090719
  Serious: Yes (Hospitalization)
  Sender: FDA-Public Use
  Company Number: PHHY2009FR02038

PATIENT
  Sex: Female

DRUGS (4)
  1. ZOMETA [Suspect]
     Indication: OSTEOPOROSIS
     Dosage: 4 MG ONCE PER YEAR
     Route: 042
     Dates: start: 20081020
  2. BONIVA [Suspect]
     Dosage: UNK
     Route: 042
     Dates: start: 20070301
  3. BONIVA [Suspect]
     Dosage: UNK
     Dates: start: 20080227
  4. BONIVA [Suspect]
     Dosage: UNK
     Dates: start: 20080527

REACTIONS (5)
  - ARTHRALGIA [None]
  - C-REACTIVE PROTEIN INCREASED [None]
  - HEADACHE [None]
  - INFLAMMATION [None]
  - TENOSYNOVITIS [None]
